FAERS Safety Report 7442036 (Version 4)
Quarter: 2012Q4

REPORT INFORMATION
  Report Type: 
  Country: US (occurrence: US)
  Receive Date: 20100628
  Receipt Date: 20121016
  Transmission Date: 20130627
  Serious: No
  Sender: FDA-Public Use
  Company Number: US-BIOGENIDEC-2010BI021099

PATIENT
  Age: 45 None
  Sex: Female

DRUGS (2)
  1. TYSABRI [Suspect]
     Indication: MULTIPLE SCLEROSIS
     Route: 042
     Dates: start: 20091111, end: 20100609
  2. TYSABRI [Suspect]
     Indication: MULTIPLE SCLEROSIS
     Route: 042
     Dates: start: 20120726

REACTIONS (7)
  - Confusional state [Unknown]
  - Cognitive disorder [Not Recovered/Not Resolved]
  - Impulsive behaviour [Unknown]
  - Mental impairment [Not Recovered/Not Resolved]
  - Judgement impaired [Not Recovered/Not Resolved]
  - Drug ineffective [Recovered/Resolved with Sequelae]
  - Asthenia [Recovered/Resolved with Sequelae]
